FAERS Safety Report 8758564 (Version 1)
Quarter: 2012Q4

REPORT INFORMATION
  Report Type: 
  Country: US (occurrence: US)
  Receive Date: 20120829
  Receipt Date: 20120829
  Transmission Date: 20130627
  Serious: No
  Sender: FDA-Public Use
  Company Number: US-GLAXOSMITHKLINE-A0964427A

PATIENT
  Age: 62 Year
  Sex: Female

DRUGS (4)
  1. ZOVIRAX [Suspect]
     Indication: ORAL HERPES
     Dosage: 1APP Five times per day
     Route: 061
     Dates: start: 20111227, end: 201201
  2. ESTRADIOL [Concomitant]
  3. PROGESTERONE [Concomitant]
  4. TESTOSTERONE [Concomitant]

REACTIONS (4)
  - Application site irritation [Recovering/Resolving]
  - Application site scar [Not Recovered/Not Resolved]
  - Drug ineffective [Unknown]
  - Product quality issue [Unknown]
